FAERS Safety Report 6227142-2 (Version None)
Quarter: 2009Q2

REPORT INFORMATION
  Report Type: 
  Country: None (occurrence: None)
  Receive Date: 20090610
  Receipt Date: 20090529
  Transmission Date: 20091009
  Serious: Yes (Hospitalization)
  Sender: FDA-Public Use
  Company Number: JP-WYE-H08809109

PATIENT
  Age: 82 Year
  Sex: Male

DRUGS (13)
  1. ZOSYN [Suspect]
     Indication: PNEUMONIA
     Dosage: 2.25 G 4X PER 1 DAY INTRAVENOUS DRIP
     Route: 041
     Dates: start: 20090311, end: 20090323
  2. DIART (AZOSEMIDE) [Concomitant]
  3. URINORM (BENZBROMARONE) [Concomitant]
  4. ALDACTONE (POTASSIUM CANRENOATE) [Concomitant]
  5. SIGMART (NICORANDIL) [Concomitant]
  6. DILTIAZEM HYDROCHLORIDE [Concomitant]
  7. ALLOPURINOL [Concomitant]
  8. WARFARIN SODIUM [Concomitant]
  9. KAYEXALATE [Concomitant]
  10. HALCION [Concomitant]
  11. MUCODYNE (CARBOCISTEINE) [Concomitant]
  12. URSO (URSODEOXYCHOLIC ACID) [Concomitant]
  13. BIOFERMIN (BACILLUS SUBTILIS/LACTOBACILLUS ACIDOPHILUS /STREPTOCOCCUS [Concomitant]

REACTIONS (3)
  - CONDITION AGGRAVATED [None]
  - PNEUMONIA [None]
  - PYREXIA [None]
